FAERS Safety Report 25097245 (Version 2)
Quarter: 2025Q2

REPORT INFORMATION
  Report Type: Report from Study
  Country: CA (occurrence: CA)
  Receive Date: 20250320
  Receipt Date: 20250620
  Transmission Date: 20250716
  Serious: Yes (Hospitalization, Other)
  Sender: JAZZ
  Company Number: CA-JAZZ PHARMACEUTICALS-2025-CA-007043

PATIENT
  Age: 20 Year
  Sex: Male
  Weight: 61.7 kg

DRUGS (6)
  1. EPIDIOLEX [Suspect]
     Active Substance: CANNABIDIOL
     Indication: Lennox-Gastaut syndrome
  2. EPIDIOLEX [Suspect]
     Active Substance: CANNABIDIOL
     Dates: start: 20250201
  3. EPIDIOLEX [Suspect]
     Active Substance: CANNABIDIOL
  4. CLOBAZAM [Suspect]
     Active Substance: CLOBAZAM
     Indication: Product used for unknown indication
  5. VALPROATE [Concomitant]
     Active Substance: VALPROIC ACID
     Indication: Product used for unknown indication
     Dosage: 375 MILLIGRAM, TID
  6. LAMOTRIGINE [Concomitant]
     Active Substance: LAMOTRIGINE
     Indication: Product used for unknown indication
     Dosage: 25 MILLIGRAM, BID

REACTIONS (6)
  - Influenza [Unknown]
  - Upper respiratory tract infection [Unknown]
  - Meningioma benign [Unknown]
  - Somnolence [Unknown]
  - Diarrhoea [Unknown]
  - Drug interaction [Unknown]

NARRATIVE: CASE EVENT DATE: 20250216
